FAERS Safety Report 11993799 (Version 5)
Quarter: 2019Q4

REPORT INFORMATION
  Report Type: Spontaneous
  Country: PL (occurrence: PL)
  Receive Date: 20160203
  Receipt Date: 20191206
  Transmission Date: 20200122
  Serious: Yes (Death, Hospitalization, Other)
  Sender: FDA-Public Use
  Company Number: PL-MYLANLABS-2016M1003782

PATIENT
  Age: 58 Year
  Sex: Female

DRUGS (49)
  1. AMOXICILLIN/CLAVULANIC ACID [Suspect]
     Active Substance: AMOXICILLIN\CLAVULANIC ACID
     Indication: URINARY TRACT INFECTION
     Dosage: UNK
     Route: 065
  2. AMIKACIN. [Suspect]
     Active Substance: AMIKACIN
     Indication: BACTERIAL INFECTION
     Dosage: UNK
     Route: 065
  3. CLINDAMYCIN. [Suspect]
     Active Substance: CLINDAMYCIN
     Indication: OTITIS MEDIA
  4. GLIMEPIRIDE. [Suspect]
     Active Substance: GLIMEPIRIDE
     Indication: DIABETES MELLITUS
     Dosage: UNK
     Route: 065
  5. PREDNISONE. [Suspect]
     Active Substance: PREDNISONE
     Indication: LUNG TRANSPLANT
     Dosage: 10 MILLIGRAM, QD
     Route: 065
  6. PREDNISONE. [Suspect]
     Active Substance: PREDNISONE
     Indication: IMMUNOSUPPRESSANT DRUG THERAPY
     Dosage: UNK
  7. RITUXIMAB. [Concomitant]
     Active Substance: RITUXIMAB
     Dosage: UNK
  8. CIPROFLOXACIN. [Suspect]
     Active Substance: CIPROFLOXACIN
     Indication: PRODUCT USED FOR UNKNOWN INDICATION
     Dosage: UNK
     Route: 065
  9. CEFUROXIME. [Suspect]
     Active Substance: CEFUROXIME
     Indication: BACTERIAL INFECTION
     Dosage: UNK
     Route: 065
  10. MYCOPHENOLATE MOFETIL. [Suspect]
     Active Substance: MYCOPHENOLATE MOFETIL
     Indication: IMMUNOSUPPRESSANT DRUG THERAPY
     Dosage: UNK
  11. MIANSERIN [Suspect]
     Active Substance: MIANSERIN
     Indication: DEPRESSION
     Dosage: UNK
     Route: 065
  12. CEFTAZIDIME. [Concomitant]
     Active Substance: CEFTAZIDIME
     Indication: ESCHERICHIA SEPSIS
     Dosage: UNK
  13. AMOXICILLIN/CLAVULANIC ACID [Suspect]
     Active Substance: AMOXICILLIN\CLAVULANIC ACID
     Indication: MORAXELLA INFECTION
     Dosage: UNK
     Route: 065
  14. NYSTATIN. [Suspect]
     Active Substance: NYSTATIN
     Indication: BACTERIAL INFECTION
     Dosage: UNK
     Route: 065
  15. BUDESONIDE. [Suspect]
     Active Substance: BUDESONIDE
     Indication: POLYP
     Dosage: UNK
     Route: 065
  16. METHYLPREDNISOLONE                 /00049603/ [Suspect]
     Active Substance: METHYLPREDNISOLONE
     Indication: LUNG TRANSPLANT
     Dosage: UNK
     Route: 065
  17. METHYLPREDNISOLONE                 /00049603/ [Suspect]
     Active Substance: METHYLPREDNISOLONE
     Indication: IMMUNOSUPPRESSANT DRUG THERAPY
  18. PANTOPRAZOLE [Suspect]
     Active Substance: PANTOPRAZOLE
     Indication: PRODUCT USED FOR UNKNOWN INDICATION
     Dosage: UNK
     Route: 065
  19. IMIPENEM [Suspect]
     Active Substance: IMIPENEM
     Indication: BACTERIAL INFECTION
     Dosage: UNK
     Route: 065
  20. METRONIDAZOLE. [Suspect]
     Active Substance: METRONIDAZOLE
     Indication: INFECTION
  21. MYCOPHENOLATE MOFETIL. [Suspect]
     Active Substance: MYCOPHENOLATE MOFETIL
     Indication: LUNG TRANSPLANT
     Dosage: 1000 MILLIGRAM, BID
     Route: 065
  22. CEFTAZIDIME. [Suspect]
     Active Substance: CEFTAZIDIME
     Indication: ESCHERICHIA SEPSIS
     Dosage: UNK
     Route: 065
  23. OPIPRAMOL [Suspect]
     Active Substance: OPIPRAMOL
     Indication: ANXIETY DISORDER
     Dosage: UNK
     Route: 065
  24. CYCLOSPORINE. [Suspect]
     Active Substance: CYCLOSPORINE
     Indication: LUNG TRANSPLANT
     Dosage: 50 MILLIGRAM, BID
     Route: 065
  25. VENLAFAXINE [Concomitant]
     Active Substance: VENLAFAXINE HYDROCHLORIDE
     Indication: ANXIETY DISORDER
     Dosage: UNK
  26. ALBUMIN [Concomitant]
     Active Substance: ALBUMIN HUMAN
     Indication: PRODUCT USED FOR UNKNOWN INDICATION
     Dosage: 100 MILLILITER, UNK
     Route: 065
  27. AMOXICILLIN/CLAVULANIC ACID [Suspect]
     Active Substance: AMOXICILLIN\CLAVULANIC ACID
     Indication: BRONCHITIS
     Dosage: UNK
     Route: 065
  28. NYSTATIN. [Suspect]
     Active Substance: NYSTATIN
     Indication: ACINETOBACTER INFECTION
  29. BUDESONIDE. [Suspect]
     Active Substance: BUDESONIDE
     Indication: OTITIS MEDIA
     Dosage: UNK
  30. INSULIN [Suspect]
     Active Substance: INSULIN NOS
     Indication: DIABETES MELLITUS
     Dosage: UNK
     Route: 065
  31. CEFTAZIDIME. [Suspect]
     Active Substance: CEFTAZIDIME
     Indication: OTITIS MEDIA
     Dosage: UNK
     Route: 065
  32. METRONIDAZOLE. [Suspect]
     Active Substance: METRONIDAZOLE
     Indication: BACTERIAL INFECTION
     Dosage: UNK
     Route: 065
  33. VALGANCICLOVIR. [Suspect]
     Active Substance: VALGANCICLOVIR
     Indication: CYTOMEGALOVIRUS INFECTION
     Dosage: UNK
     Route: 065
  34. TACROLIMUS. [Suspect]
     Active Substance: TACROLIMUS
     Indication: LUNG TRANSPLANT
     Dosage: 0.5 MILLIGRAM, QD
     Route: 065
  35. TACROLIMUS. [Suspect]
     Active Substance: TACROLIMUS
     Indication: IMMUNOSUPPRESSANT DRUG THERAPY
  36. GANCICLOVIR. [Suspect]
     Active Substance: GANCICLOVIR
     Indication: CYTOMEGALOVIRUS INFECTION
     Dosage: UNK
     Route: 065
  37. OPIPRAMOL [Suspect]
     Active Substance: OPIPRAMOL
     Indication: PULMONARY EMBOLISM
     Dosage: UNK
     Route: 065
  38. CICLOSPORIN [Suspect]
     Active Substance: CYCLOSPORINE
     Indication: LUNG TRANSPLANT
     Dosage: 50 MILLIGRAM, QD
     Route: 065
  39. ITRACONAZOLE. [Suspect]
     Active Substance: ITRACONAZOLE
     Indication: BACTERIAL INFECTION
     Dosage: UNK
     Route: 065
  40. AMPICILLIN/SULBACTAM [Suspect]
     Active Substance: AMPICILLIN SODIUM\SULBACTAM SODIUM
     Indication: BACTERIAL INFECTION
     Dosage: UNK
     Route: 065
  41. AMPHOTERICIN [Suspect]
     Active Substance: AMPHOTERICIN B
     Indication: BACTERIAL INFECTION
     Dosage: UNK
     Route: 065
  42. COLISTIN [Suspect]
     Active Substance: COLISTIN
     Indication: BACTERIAL INFECTION
     Dosage: UNK
     Route: 065
  43. TAZOBACTAM [Suspect]
     Active Substance: TAZOBACTAM
     Indication: INFECTION
     Dosage: UNK
     Route: 065
  44. CLINDAMYCIN. [Suspect]
     Active Substance: CLINDAMYCIN
     Indication: POLYP
     Dosage: UNK
     Route: 065
  45. METHYLPREDNISOLONE                 /00049603/ [Suspect]
     Active Substance: METHYLPREDNISOLONE
     Indication: LUNG TRANSPLANT REJECTION
     Dosage: UNK
     Route: 065
  46. CYCLOSPORINE. [Suspect]
     Active Substance: CYCLOSPORINE
     Indication: IMMUNOSUPPRESSION
     Dosage: UNK
  47. CEFTAZIDIME. [Suspect]
     Active Substance: CEFTAZIDIME
     Indication: BACTERIAL INFECTION
  48. CICLOSPORIN [Suspect]
     Active Substance: CYCLOSPORINE
     Indication: IMMUNOSUPPRESSANT DRUG THERAPY
     Dosage: 50 MILLIGRAM, BID
  49. RITUXIMAB. [Concomitant]
     Active Substance: RITUXIMAB
     Indication: LUNG TRANSPLANT
     Dosage: 0.5 MILLIGRAM, QD
     Route: 065

REACTIONS (31)
  - Leukopenia [Fatal]
  - Anxiety disorder [Unknown]
  - Depressive symptom [Unknown]
  - Pulmonary embolism [Unknown]
  - Proteus infection [Unknown]
  - Diabetic ketoacidosis [Unknown]
  - Sepsis [Fatal]
  - Bronchitis [Unknown]
  - Renal failure [Not Recovered/Not Resolved]
  - Aspergillus infection [Unknown]
  - Lung disorder [Unknown]
  - Escherichia sepsis [Fatal]
  - Transplant rejection [Fatal]
  - Candida infection [Unknown]
  - Infection [Unknown]
  - Diabetes mellitus [Fatal]
  - Polyp [Unknown]
  - Cytomegalovirus infection [Not Recovered/Not Resolved]
  - Escherichia urinary tract infection [Unknown]
  - Klebsiella infection [Unknown]
  - Lung transplant rejection [Unknown]
  - Bacterial infection [Fatal]
  - Pseudomonas infection [Recovered/Resolved]
  - Otitis media [Unknown]
  - Acinetobacter infection [Unknown]
  - Hypoproteinaemia [Unknown]
  - Electrolyte imbalance [Unknown]
  - Moraxella infection [Unknown]
  - Hypogammaglobulinaemia [Unknown]
  - Condition aggravated [Unknown]
  - Depression [Unknown]
